FAERS Safety Report 24233475 (Version 1)
Quarter: 2024Q3

REPORT INFORMATION
  Report Type: Report from Study
  Country: EG (occurrence: EG)
  Receive Date: 20240821
  Receipt Date: 20240821
  Transmission Date: 20241016
  Serious: No
  Sender: SANDOZ
  Company Number: EG-SANDOZ-SDZ2024EG067445

PATIENT
  Sex: Male
  Weight: 24 kg

DRUGS (3)
  1. OMNITROPE [Suspect]
     Active Substance: SOMATROPIN
     Indication: Growth hormone deficiency
     Dosage: 1.3 MG (SOLUTION IN CARTRIDGE)
     Route: 058
     Dates: start: 2022
  2. OMNITROPE [Suspect]
     Active Substance: SOMATROPIN
     Dosage: 10 MG
     Route: 065
  3. VITAMINS [Concomitant]
     Active Substance: VITAMINS
     Indication: Weight decreased
     Dosage: UNK, POWDER ADDED TO THE MILK
     Route: 048
     Dates: start: 202405

REACTIONS (5)
  - Weight decreased [Unknown]
  - Injection site swelling [Not Recovered/Not Resolved]
  - Injection site pain [Not Recovered/Not Resolved]
  - Drug administered in wrong device [Unknown]
  - Off label use [Unknown]
